FAERS Safety Report 24400256 (Version 1)
Quarter: 2024Q4

REPORT INFORMATION
  Report Type: Spontaneous
  Country: US (occurrence: US)
  Receive Date: 20241005
  Receipt Date: 20241005
  Transmission Date: 20250115
  Serious: Yes (Other)
  Sender: GLENMARK
  Company Number: US-GLENMARK PHARMACEUTICALS-2024GMK094484

PATIENT

DRUGS (6)
  1. ATOVAQUONE [Suspect]
     Active Substance: ATOVAQUONE
     Indication: Prophylaxis
     Dosage: UNK
     Route: 065
  2. SULFAMETHOXAZOLE\TRIMETHOPRIM [Suspect]
     Active Substance: SULFAMETHOXAZOLE\TRIMETHOPRIM
     Indication: Prophylaxis
     Dosage: UNK
     Route: 065
  3. FLUCYTOSINE [Concomitant]
     Active Substance: FLUCYTOSINE
     Indication: Disseminated cryptococcosis
     Dosage: UNK
     Route: 065
  4. PREDNISONE [Concomitant]
     Active Substance: PREDNISONE
     Indication: Glomerulonephritis proliferative
     Dosage: 40 MILLIGRAM, QD
     Route: 065
  5. PREDNISONE [Concomitant]
     Active Substance: PREDNISONE
     Indication: Monoclonal immunoglobulin present
  6. FLUCONAZOLE [Concomitant]
     Active Substance: FLUCONAZOLE
     Indication: Disseminated cryptococcosis
     Dosage: UNK
     Route: 065

REACTIONS (2)
  - Renal failure [Recovering/Resolving]
  - Treatment failure [Unknown]
